FAERS Safety Report 5875199-0 (Version None)
Quarter: 2008Q3

REPORT INFORMATION
  Report Type: 
  Country: None (occurrence: None)
  Receive Date: 20080909
  Receipt Date: 20080829
  Transmission Date: 20090109
  Serious: Yes (Death)
  Sender: FDA-Public Use
  Company Number: US-EISAI MEDIAL RESEARCH-E3810-02120-SPO-US

PATIENT
  Age: 80 Year
  Sex: Male

DRUGS (1)
  1. ACIPHEX [Suspect]
     Route: 048

REACTIONS (1)
  - PNEUMONIA [None]
